FAERS Safety Report 20773616 (Version 13)
Quarter: 2022Q3

REPORT INFORMATION
  Report Type: Report from Study
  Country: MY (occurrence: None)
  Receive Date: 20220502
  Receipt Date: 20220728
  Transmission Date: 20221027
  Serious: Yes (Hospitalization, Other)
  Sender: FDA-Public Use
  Company Number: MY-Eisai Medical Research-EC-2022-113942

PATIENT
  Age: 55 Year
  Sex: Female
  Weight: 53.5 kg

DRUGS (14)
  1. LENVATINIB [Suspect]
     Active Substance: LENVATINIB
     Indication: Clear cell renal cell carcinoma
     Route: 048
     Dates: start: 20220308, end: 20220423
  2. LENVATINIB [Suspect]
     Active Substance: LENVATINIB
     Route: 048
     Dates: start: 20220517
  3. QUAVONLIMAB [Suspect]
     Active Substance: QUAVONLIMAB
     Indication: Clear cell renal cell carcinoma
     Dosage: MK-1308A QUAVONLIMAB 25 MG (+) PEMBROLIZUMAB 400 MG
     Route: 041
     Dates: start: 20220308, end: 20220308
  4. PEMBROLIZUMAB [Suspect]
     Active Substance: PEMBROLIZUMAB
     Dosage: MK-1308A QUAVONLIMAB 25 MG (+) PEMBROLIZUMAB 400 MG
     Route: 041
     Dates: start: 20220506
  5. MORPHINE [Concomitant]
     Active Substance: MORPHINE
     Dates: start: 20220207
  6. LACTULOSE [Concomitant]
     Active Substance: LACTULOSE
     Dates: start: 20220207
  7. FERROUS FUMARATE [Concomitant]
     Active Substance: FERROUS FUMARATE
     Dates: start: 202202
  8. LOPERAMIDE [Concomitant]
     Active Substance: LOPERAMIDE
     Dates: start: 20220308
  9. SIMVASTATIN [Concomitant]
     Active Substance: SIMVASTATIN
     Dates: start: 202110
  10. DABIGATRAN [Concomitant]
     Active Substance: DABIGATRAN
     Dates: start: 202110
  11. VITAMINS [Concomitant]
     Active Substance: VITAMINS
     Dates: start: 20220308
  12. DIHYDROCODEINE BITARTRATE [Concomitant]
     Active Substance: DIHYDROCODEINE BITARTRATE
     Dates: start: 20220315
  13. BONJELA [CETALKONIUM CHLORIDE;CHOLINE SALICYLATE] [Concomitant]
     Dates: start: 20220412
  14. BROMHEXINE HYDROCHLORIDE [Concomitant]
     Active Substance: BROMHEXINE HYDROCHLORIDE
     Dates: start: 20220326

REACTIONS (2)
  - Neutropenia [Recovered/Resolved]
  - COVID-19 [Recovered/Resolved]

NARRATIVE: CASE EVENT DATE: 20220420
